FAERS Safety Report 6924136-6 (Version None)
Quarter: 2010Q3

REPORT INFORMATION
  Report Type: 
  Country: None (occurrence: None)
  Receive Date: 20100812
  Receipt Date: 20100812
  Transmission Date: 20110219
  Serious: Yes (Other)
  Sender: FDA-Public Use
  Company Number: None

PATIENT
  Age: 1 Year
  Weight: 0.4536 kg

DRUGS (4)
  1. AMIDATE [Suspect]
     Indication: INDUCTION OF ANAESTHESIA
     Dosage: INDIVIDUAL FOR PATIENT
     Dates: start: 20100701, end: 20100810
  2. AMIDATE [Suspect]
     Indication: INDUCTION OF ANAESTHESIA
     Dosage: INDIVIDUAL FOR PATIENT
  3. AMIDATE [Suspect]
  4. AMIDATE [Suspect]

REACTIONS (1)
  - PHLEBITIS [None]
